FAERS Safety Report 8176747-0 (Version None)
Quarter: 2012Q1

REPORT INFORMATION
  Report Type: 
  Country: None (occurrence: None)
  Receive Date: 20120228
  Receipt Date: 20120223
  Transmission Date: 20120608
  Serious: Yes (Other)
  Sender: FDA-Public Use
  Company Number: 2012MA002500

PATIENT
  Age: 69 Year
  Sex: Female

DRUGS (13)
  1. PACLITAXEL [Suspect]
     Indication: BREAST CANCER METASTATIC
     Dosage: 180 MG; IV
     Route: 042
     Dates: start: 20120207, end: 20120207
  2. RANITIDINE [Concomitant]
  3. DEXAMETHASONE [Concomitant]
  4. AMLODIPINE [Concomitant]
  5. RABEPRAZOLE SODIUM [Concomitant]
  6. ENALAPRIL MALEATE [Concomitant]
  7. INSULIN [Concomitant]
  8. CHLORPHENIRAMINE MALEATE [Concomitant]
  9. BENDROFLUMETHIAZIDE [Concomitant]
  10. ATENOLOL [Concomitant]
  11. SALICYLATES NOS [Concomitant]
  12. CAPECITABINE [Concomitant]
  13. ENOXAPARIN SODIUM [Concomitant]

REACTIONS (3)
  - CHEST DISCOMFORT [None]
  - CONFUSIONAL STATE [None]
  - FLUSHING [None]
